FAERS Safety Report 16876394 (Version 1)
Quarter: 2019Q3

REPORT INFORMATION
  Report Type: Spontaneous
  Country: US (occurrence: US)
  Receive Date: 20190807
  Receipt Date: 20190807
  Transmission Date: 20191005
  Serious: No
  Sender: FDA-Public Use
  Company Number: None

PATIENT
  Age: 63 Year
  Sex: Male

DRUGS (2)
  1. LUPRON [Concomitant]
     Active Substance: LEUPROLIDE ACETATE
  2. ERLEADA [Suspect]
     Active Substance: APALUTAMIDE
     Dates: start: 201907

REACTIONS (3)
  - Middle insomnia [None]
  - Hyperhidrosis [None]
  - Feeling hot [None]

NARRATIVE: CASE EVENT DATE: 20190807
